FAERS Safety Report 6784385-7 (Version None)
Quarter: 2010Q2

REPORT INFORMATION
  Report Type: 
  Country: None (occurrence: None)
  Receive Date: 20100622
  Receipt Date: 20100610
  Transmission Date: 20101027
  Serious: Yes (Other)
  Sender: FDA-Public Use
  Company Number: FR-SANOFI-AVENTIS-2010SA033378

PATIENT
  Age: 61 Year
  Sex: Male

DRUGS (10)
  1. MYOLASTAN [Suspect]
     Indication: DRUG USE FOR UNKNOWN INDICATION
     Route: 048
     Dates: start: 20090317, end: 20090414
  2. ZOLPIDEM [Suspect]
     Indication: DRUG USE FOR UNKNOWN INDICATION
     Route: 048
     Dates: start: 20090225, end: 20090414
  3. BOTOX [Suspect]
     Indication: DRUG USE FOR UNKNOWN INDICATION
     Route: 030
     Dates: start: 20090407
  4. BACLOFEN [Suspect]
     Indication: DRUG USE FOR UNKNOWN INDICATION
     Route: 048
     Dates: start: 20090211, end: 20090426
  5. DEROXAT [Suspect]
     Indication: DRUG USE FOR UNKNOWN INDICATION
     Route: 048
  6. LOVENOX [Concomitant]
     Indication: DRUG USE FOR UNKNOWN INDICATION
     Route: 058
  7. PERINDOPRIL [Concomitant]
     Route: 065
  8. XATRAL [Concomitant]
     Indication: DEPRESSION
     Route: 065
  9. SINTROM [Concomitant]
     Indication: THROMBOSIS PROPHYLAXIS
     Route: 065
  10. TAHOR [Concomitant]
     Route: 065

REACTIONS (1)
  - GRAND MAL CONVULSION [None]
